FAERS Safety Report 8190545-3 (Version None)
Quarter: 2012Q1

REPORT INFORMATION
  Report Type: 
  Country: None (occurrence: None)
  Receive Date: 20120305
  Receipt Date: 20120221
  Transmission Date: 20120608
  Serious: Yes (Other)
  Sender: FDA-Public Use
  Company Number: 2012MA001640

PATIENT
  Sex: Female

DRUGS (2)
  1. IBUPROFEN [Concomitant]
  2. ACYCLOVIR [Suspect]
     Indication: HERPES VIRUS INFECTION
     Dosage: 800 MG
     Dates: start: 20110912

REACTIONS (3)
  - ALOPECIA [None]
  - EMOTIONAL DISTRESS [None]
  - DEPRESSION [None]
